FAERS Safety Report 11167724 (Version 1)
Quarter: 2015Q2

REPORT INFORMATION
  Report Type: Spontaneous
  Country: JP (occurrence: JP)
  Receive Date: 20150605
  Receipt Date: 20150605
  Transmission Date: 20150821
  Serious: Yes (Hospitalization, Other)
  Sender: FDA-Public Use
  Company Number: JP-009507513-1406JPN012078

PATIENT
  Age: 69 Year
  Sex: Male
  Weight: 60 kg

DRUGS (11)
  1. CANCIDAS [Suspect]
     Active Substance: CASPOFUNGIN ACETATE
     Indication: FEBRILE NEUTROPENIA
     Dosage: 70 MG, ONCE
     Route: 041
     Dates: start: 20140618, end: 20140618
  2. MYSLEE [Concomitant]
     Active Substance: ZOLPIDEM TARTRATE
     Indication: INSOMNIA
     Dosage: 5 MG, QD
     Route: 048
     Dates: start: 20140519
  3. ZYVOX [Concomitant]
     Active Substance: LINEZOLID
     Indication: ORAL INFECTION
     Dosage: 600 MG, BID
     Route: 048
     Dates: start: 20140603
  4. MAGLAX (MAGNESIUM OXIDE) [Concomitant]
     Active Substance: MAGNESIUM OXIDE
     Indication: CONSTIPATION
     Dosage: 330 MG, TID
     Route: 048
     Dates: start: 20140519
  5. MEROPENEM. [Concomitant]
     Active Substance: MEROPENEM
     Indication: FEBRILE NEUTROPENIA
     Dosage: 0.5 G, TID
     Route: 051
     Dates: start: 20140526
  6. VORICONAZOLE. [Concomitant]
     Active Substance: VORICONAZOLE
     Indication: FEBRILE NEUTROPENIA
     Dosage: 400 MG, QD DIVIDED DOSE FREQUENCY
     Route: 048
     Dates: start: 20140607, end: 20140614
  7. NEUTROGIN [Concomitant]
     Active Substance: LENOGRASTIM
     Indication: MYELODYSPLASTIC SYNDROME
     Dosage: 250 MICROGRAM, QD
     Route: 051
     Dates: start: 20140617
  8. ATORVASTATIN CALCIUM. [Concomitant]
     Active Substance: ATORVASTATIN CALCIUM
     Indication: HYPERLIPIDAEMIA
     Dosage: 10 MG, QD
     Route: 048
     Dates: start: 20140519
  9. GASLON [Concomitant]
     Active Substance: IRSOGLADINE MALEATE
     Indication: GASTRITIS
     Dosage: 2 MG, BID
     Route: 048
     Dates: start: 20140519
  10. CANCIDAS [Suspect]
     Active Substance: CASPOFUNGIN ACETATE
     Indication: FEBRILE NEUTROPENIA
     Dosage: 50 MG, QD
     Route: 041
     Dates: start: 20140619, end: 20140630
  11. ITRACONAZOLE. [Concomitant]
     Active Substance: ITRACONAZOLE
     Indication: FEBRILE NEUTROPENIA
     Dosage: 200 MG, DIVIDED DOSE FREQUENCY UNKNOWN, TOTAL DAILY DOSE: 200 MG
     Route: 048
     Dates: start: 20140615, end: 20140619

REACTIONS (4)
  - Pyrexia [Recovered/Resolved]
  - C-reactive protein increased [Recovering/Resolving]
  - Septic shock [Recovered/Resolved]
  - Febrile neutropenia [Recovered/Resolved]

NARRATIVE: CASE EVENT DATE: 20140618
